FAERS Safety Report 5234354-3 (Version None)
Quarter: 2007Q1

REPORT INFORMATION
  Report Type: 
  Country: None (occurrence: None)
  Receive Date: 20070209
  Receipt Date: 20070125
  Transmission Date: 20070707
  Serious: Yes (Hospitalization)
  Sender: FDA-Public Use
  Company Number: FR-BRISTOL-MYERS SQUIBB COMPANY-13659867

PATIENT
  Age: 60 Year
  Sex: Male

DRUGS (11)
  1. APROVEL TABS 300 MG [Suspect]
     Indication: HYPERTENSION
     Route: 048
     Dates: start: 20061116, end: 20061116
  2. LASIX [Suspect]
     Indication: HYPERTENSION
     Dates: start: 20061116, end: 20061120
  3. SEROPRAM [Suspect]
     Indication: DEPRESSION
     Dates: start: 20061116
  4. ZYLORIC [Concomitant]
     Dates: start: 20061116
  5. GLUCOPHAGE [Concomitant]
     Dates: start: 20061116
  6. LEXOMIL [Concomitant]
     Dates: start: 20061116
  7. EUPANTOL [Concomitant]
  8. FLECAINIDE ACETATE [Concomitant]
  9. PERFALGAN [Concomitant]
  10. MEPRONIZINE [Concomitant]
  11. PREVISCAN [Concomitant]

REACTIONS (11)
  - BLOOD POTASSIUM INCREASED [None]
  - BLOOD UREA DECREASED [None]
  - DEHYDRATION [None]
  - GASTRIC DISORDER [None]
  - HYPONATRAEMIA [None]
  - INTERNATIONAL NORMALISED RATIO INCREASED [None]
  - LACTIC ACIDOSIS [None]
  - METABOLIC ACIDOSIS [None]
  - RENAL CYST [None]
  - RENAL FAILURE ACUTE [None]
  - VOMITING [None]
